FAERS Safety Report 6904327-0 (Version None)
Quarter: 2010Q3

REPORT INFORMATION
  Report Type: 
  Country: None (occurrence: None)
  Receive Date: 20100804
  Receipt Date: 20090423
  Transmission Date: 20110219
  Serious: No
  Sender: FDA-Public Use
  Company Number: US-PFIZER INC-2009203642

PATIENT
  Sex: Male

DRUGS (5)
  1. LYRICA [Suspect]
     Indication: FIBROMYALGIA
     Dosage: UNK
     Route: 048
     Dates: start: 20090215
  2. METOPROLOL [Concomitant]
     Dosage: 100 MG, 2X/DAY
  3. PROZAC [Concomitant]
     Dosage: 10 MG, 1X/DAY
  4. OMEPRAZOLE [Concomitant]
     Dosage: 20MG A DAY
  5. PERCOCET [Concomitant]
     Dosage: 30 A MONTH AS NEEDED

REACTIONS (2)
  - MUSCLE TWITCHING [None]
  - PAIN [None]
